FAERS Safety Report 16171552 (Version 1)
Quarter: 2019Q2

REPORT INFORMATION
  Report Type: Spontaneous
  Country: IT (occurrence: IT)
  Receive Date: 20190408
  Receipt Date: 20190408
  Transmission Date: 20190711
  Serious: Yes (Other)
  Sender: FDA-Public Use
  Company Number: IT-ALLERGAN-1915432US

PATIENT
  Sex: Female

DRUGS (3)
  1. AMOXICILLIN. [Suspect]
     Active Substance: AMOXICILLIN
     Indication: TOOTH ABSCESS
     Dosage: 12 DF, TOTAL
     Route: 048
  2. FOSFOMYCIN TROMETHAMINE - BP [Suspect]
     Active Substance: FOSFOMYCIN TROMETHAMINE
     Indication: CYSTITIS
     Dosage: 2 DF, TOTAL
     Route: 065
  3. MAGNESIUM PIDOLATE [Suspect]
     Active Substance: MAGNESIUM PIDOLATE
     Indication: FATIGUE
     Dosage: 2 DF, QD
     Route: 048
     Dates: start: 201903

REACTIONS (3)
  - Tooth abscess [Unknown]
  - Cystitis [Unknown]
  - Genital burning sensation [Not Recovered/Not Resolved]
